FAERS Safety Report 10638682 (Version 1)
Quarter: 2014Q4

REPORT INFORMATION
  Report Type: Spontaneous
  Country: US (occurrence: None)
  Receive Date: 20141205
  Receipt Date: 20141205
  Transmission Date: 20150529
  Serious: No
  Sender: FDA-Public Use
  Company Number: None

PATIENT
  Age: 58 Year
  Sex: Female

DRUGS (1)
  1. AFINITOR [Suspect]
     Active Substance: EVEROLIMUS
     Indication: BREAST CANCER
     Dosage: 10MG, 1 TAB QD, ORAL
     Route: 048
     Dates: start: 20141128

REACTIONS (3)
  - Stomatitis [None]
  - Pyrexia [None]
  - Oropharyngeal pain [None]

NARRATIVE: CASE EVENT DATE: 201412
